FAERS Safety Report 15140441 (Version 4)
Quarter: 2018Q4

REPORT INFORMATION
  Report Type: Spontaneous
  Country: US (occurrence: US)
  Receive Date: 20180713
  Receipt Date: 20181029
  Transmission Date: 20190204
  Serious: Yes (Other)
  Sender: FDA-Public Use
  Company Number: US-PFIZER INC-2018282094

PATIENT
  Age: 55 Year
  Sex: Male

DRUGS (2)
  1. RAPAMUNE [Suspect]
     Active Substance: SIROLIMUS
     Indication: DIFFUSE LARGE B-CELL LYMPHOMA
     Dosage: 0.2 MG, DAILY, (TAKE 0.2MLS (0.2 MG ) BY MOUTH DAILY)
     Route: 048
  2. RAPAMUNE [Suspect]
     Active Substance: SIROLIMUS
     Indication: BRONCHOPULMONARY ASPERGILLOSIS

REACTIONS (2)
  - Bronchopulmonary aspergillosis [Unknown]
  - Diffuse large B-cell lymphoma [Unknown]
